FAERS Safety Report 5376942-X (Version None)
Quarter: 2007Q3

REPORT INFORMATION
  Report Type: 
  Country: None (occurrence: None)
  Receive Date: 20070703
  Receipt Date: 20070626
  Transmission Date: 20080115
  Serious: Yes (Other)
  Sender: FDA-Public Use
  Company Number: BR-ASTRAZENECA-2007UW14852

PATIENT
  Age: 755 Month
  Sex: Male
  Weight: 95 kg

DRUGS (7)
  1. SYMBICORT [Suspect]
     Indication: BRONCHITIS
     Dosage: 80/4.6 UG
     Route: 055
     Dates: start: 20070620, end: 20070621
  2. MANIVASC [Concomitant]
     Indication: HYPERTENSION
     Route: 048
  3. METOPROLOL TARTRATE [Concomitant]
     Indication: HYPERTENSION
     Route: 048
  4. RIVOTRIL [Concomitant]
     Indication: DEPRESSION
     Route: 048
  5. LAMOTRIGINE [Concomitant]
     Indication: DEPRESSION
     Route: 048
  6. ALPRAZOLAM [Concomitant]
     Indication: ANXIOLYTIC THERAPY
     Route: 048
  7. BLOPRESS [Concomitant]
     Indication: HYPERTENSION
     Route: 048

REACTIONS (1)
  - DRUG INEFFECTIVE FOR UNAPPROVED INDICATION [None]
